FAERS Safety Report 13573547 (Version 1)
Quarter: 2017Q2

REPORT INFORMATION
  Report Type: Report from Study
  Country: DE (occurrence: DE)
  Receive Date: 20170523
  Receipt Date: 20170523
  Transmission Date: 20170830
  Serious: Yes (Other)
  Sender: FDA-Public Use
  Company Number: DE-CELGENEUS-DEU-20170503872

PATIENT
  Age: 58 Year
  Sex: Female
  Weight: 82 kg

DRUGS (3)
  1. MEDI4736 (DURVALUMAB) [Suspect]
     Active Substance: DURVALUMAB
     Indication: BREAST CANCER
     Dosage: 1500 MILLIGRAM
     Route: 041
     Dates: start: 20170406
  2. ABRAXANE [Suspect]
     Active Substance: PACLITAXEL
     Dosage: 227 MILLIGRAM
     Route: 041
     Dates: start: 20170420
  3. ABRAXANE [Suspect]
     Active Substance: PACLITAXEL
     Indication: BREAST CANCER
     Dosage: 227 MILLIGRAM
     Route: 041
     Dates: start: 20170420, end: 20170420

REACTIONS (1)
  - Chills [Recovered/Resolved]

NARRATIVE: CASE EVENT DATE: 20170420
